FAERS Safety Report 9484839 (Version 3)
Quarter: 2014Q1

REPORT INFORMATION
  Report Type: Spontaneous
  Country: US (occurrence: US)
  Receive Date: 20130828
  Receipt Date: 20140122
  Transmission Date: 20141002
  Serious: Yes (Hospitalization)
  Sender: FDA-Public Use
  Company Number: US-GLAXOSMITHKLINE-B0918362A

PATIENT
  Age: 54 Year
  Sex: Female

DRUGS (1)
  1. AVANDIA [Suspect]
     Indication: DIABETES MELLITUS
     Route: 048
     Dates: end: 200806

REACTIONS (7)
  - Cardiac disorder [Not Recovered/Not Resolved]
  - Traumatic lung injury [Unknown]
  - Oedema peripheral [Unknown]
  - Dyspnoea [Unknown]
  - Chest pain [Unknown]
  - Oxygen supplementation [Unknown]
  - Cardiac failure congestive [Unknown]
